FAERS Safety Report 15035986 (Version 1)
Quarter: 2018Q2

REPORT INFORMATION
  Report Type: Spontaneous
  Country: RU (occurrence: RU)
  Receive Date: 20180620
  Receipt Date: 20180620
  Transmission Date: 20180711
  Serious: Yes (Other)
  Sender: FDA-Public Use
  Company Number: RU-ADIENNEP-2018AD000337

PATIENT
  Age: 12 Year
  Sex: Male

DRUGS (3)
  1. TEPADINA [Suspect]
     Active Substance: THIOTEPA
     Indication: STEM CELL TRANSPLANT
  2. CYCLOPHOSPHAMIDE. [Suspect]
     Active Substance: CYCLOPHOSPHAMIDE
     Indication: STEM CELL TRANSPLANT
  3. MYLERAN [Suspect]
     Active Substance: BUSULFAN
     Indication: STEM CELL TRANSPLANT

REACTIONS (5)
  - Mucosal inflammation [Recovering/Resolving]
  - Drug ineffective [Recovering/Resolving]
  - Febrile neutropenia [Recovering/Resolving]
  - Graft versus host disease [Recovering/Resolving]
  - Nasopharyngitis [Recovering/Resolving]
